FAERS Safety Report 22349541 (Version 1)
Quarter: 2023Q2

REPORT INFORMATION
  Report Type: Spontaneous
  Country: US (occurrence: None)
  Receive Date: 20230519
  Receipt Date: 20230519
  Transmission Date: 20230722
  Serious: No
  Sender: FDA-Public Use
  Company Number: None

PATIENT
  Age: 29 Year
  Sex: Female

DRUGS (1)
  1. HUMIRA [Suspect]
     Active Substance: ADALIMUMAB
     Indication: Hidradenitis
     Dosage: INJECT 40MG SUBCUTANEOUSLY  ONCE A WEEK AS DIRECTED.     ??DATES OF USE - ON HOLD
     Route: 058
     Dates: start: 202303

REACTIONS (2)
  - COVID-19 [None]
  - Therapy interrupted [None]
